FAERS Safety Report 9695378 (Version 2)
Quarter: 2014Q1

REPORT INFORMATION
  Report Type: Spontaneous
  Country: DE (occurrence: DE)
  Receive Date: 20131119
  Receipt Date: 20140122
  Transmission Date: 20141002
  Serious: Yes (Hospitalization)
  Sender: FDA-Public Use
  Company Number: DE-ELI_LILLY_AND_COMPANY-DE201311002005

PATIENT
  Age: 61 Year
  Sex: Female

DRUGS (11)
  1. CYMBALTA [Suspect]
     Indication: DEPRESSION
     Dosage: 30 MG, QD
     Route: 048
  2. CYMBALTA [Suspect]
     Dosage: 60 MG, QD
     Route: 048
     Dates: end: 201307
  3. TRAZODONE [Suspect]
     Indication: SLEEP DISORDER
     Dosage: 50 MG, UNKNOWN
     Route: 065
     Dates: start: 201208, end: 20120908
  4. TRAZODONE [Suspect]
     Dosage: 200 MG, QD
     Route: 065
     Dates: start: 20120909, end: 20120912
  5. TRAZODONE [Suspect]
     Dosage: 250 MG, QD
     Route: 065
     Dates: start: 20120913, end: 20120919
  6. TRAZODONE [Suspect]
     Dosage: 200 MG, QD
     Route: 065
     Dates: start: 20120920, end: 20120926
  7. TRAZODONE [Suspect]
     Dosage: 150 MG, QD
     Route: 065
     Dates: start: 20120927, end: 20121002
  8. TRAZODONE [Suspect]
     Dosage: 100 MG, QD
     Route: 065
     Dates: start: 20121003, end: 20121006
  9. TRAZODONE [Suspect]
     Dosage: 50 MG, UNKNOWN
     Route: 065
     Dates: start: 20121007, end: 20121014
  10. METFORMIN [Concomitant]
     Indication: DIABETES MELLITUS
     Dosage: 2000 MG, QD
     Dates: start: 201207
  11. QUETIAPINE [Concomitant]
     Indication: PRODUCT USED FOR UNKNOWN INDICATION
     Dosage: UNK, UNKNOWN
     Route: 065
     Dates: start: 20121017

REACTIONS (7)
  - Gamma-glutamyltransferase increased [Recovered/Resolved]
  - Glycosylated haemoglobin increased [Recovered/Resolved]
  - Blood glucose increased [Recovered/Resolved]
  - Blood alkaline phosphatase increased [Recovered/Resolved]
  - Alanine aminotransferase increased [Recovered/Resolved]
  - Sleep disorder [Unknown]
  - Drug withdrawal syndrome [Unknown]
